FAERS Safety Report 5920019-9 (Version None)
Quarter: 2008Q4

REPORT INFORMATION
  Report Type: 
  Country: None (occurrence: None)
  Receive Date: 20081014
  Receipt Date: 20081003
  Transmission Date: 20090506
  Serious: Yes (Hospitalization)
  Sender: FDA-Public Use
  Company Number: 230293K08USA

PATIENT
  Age: 21 Year
  Sex: Male
  Weight: 75 kg

DRUGS (5)
  1. REBIF [Suspect]
     Indication: MULTIPLE SCLEROSIS
     Dosage: 44 MCG, 3 IN 1 WEEKS, SUBCUTANEOUS
     Route: 058
     Dates: start: 20070531
  2. LORAZEPAM [Concomitant]
  3. CITALOPRAM HYDROBROMIDE [Concomitant]
  4. IBUPROFEN [Concomitant]
  5. VICODIN [Concomitant]

REACTIONS (6)
  - DEHYDRATION [None]
  - GAIT DISTURBANCE [None]
  - INFLUENZA [None]
  - INJECTION SITE IRRITATION [None]
  - PAIN [None]
  - PAIN IN EXTREMITY [None]
